FAERS Safety Report 10884606 (Version 1)
Quarter: 2015Q1

REPORT INFORMATION
  Report Type: Spontaneous
  Country: US (occurrence: None)
  Receive Date: 20150227
  Receipt Date: 20150227
  Transmission Date: 20150721
  Serious: Yes (Other)
  Sender: FDA-Public Use
  Company Number: None

PATIENT
  Sex: Male
  Weight: 112.95 kg

DRUGS (2)
  1. TERAZOSIN HCL [Suspect]
     Active Substance: TERAZOSIN HYDROCHLORIDE
     Indication: PROSTATOMEGALY
     Route: 048
     Dates: start: 2007, end: 20150128
  2. SAW PALMETTO [Concomitant]
     Active Substance: SAW PALMETTO

REACTIONS (6)
  - Nerve injury [None]
  - Paraesthesia [None]
  - Weight increased [None]
  - Burning sensation [None]
  - Epistaxis [None]
  - Sexual dysfunction [None]
